FAERS Safety Report 9643006 (Version 1)
Quarter: 2013Q4

REPORT INFORMATION
  Report Type: Spontaneous
  Country: FR (occurrence: FR)
  Receive Date: 20131024
  Receipt Date: 20131024
  Transmission Date: 20140711
  Serious: Yes (Other)
  Sender: FDA-Public Use
  Company Number: FR-JNJFOC-20131010873

PATIENT
  Age: 22 Year
  Sex: Female

DRUGS (6)
  1. REMICADE [Suspect]
     Indication: COLITIS
     Route: 042
  2. REMICADE [Suspect]
     Indication: COLITIS
     Route: 042
     Dates: start: 20090825
  3. REMICADE [Suspect]
     Indication: COLITIS
     Route: 042
     Dates: start: 20131002, end: 20131002
  4. HYDROXYZINE [Concomitant]
     Indication: PREMEDICATION
     Route: 065
     Dates: start: 20131001
  5. METHYLPREDNISOLONE [Concomitant]
     Indication: PREMEDICATION
     Route: 065
     Dates: start: 20131002
  6. DEXCHLORPHENIRAMINE [Concomitant]
     Indication: PREMEDICATION
     Route: 065
     Dates: start: 20131002

REACTIONS (3)
  - Urticaria [Recovered/Resolved]
  - Infusion related reaction [Recovered/Resolved]
  - Respiratory distress [Unknown]
